FAERS Safety Report 7075424-7 (Version None)
Quarter: 2010Q4

REPORT INFORMATION
  Report Type: 
  Country: None (occurrence: None)
  Receive Date: 20101030
  Receipt Date: 20100906
  Transmission Date: 20110411
  Serious: No
  Sender: FDA-Public Use
  Company Number: US-WYE-H17388410

PATIENT
  Sex: Male
  Weight: 63.56 kg

DRUGS (6)
  1. PRISTIQ [Suspect]
     Indication: DEPRESSION
     Dates: start: 20100701
  2. PRISTIQ [Suspect]
     Indication: ANXIETY
  3. LEXAPRO [Concomitant]
  4. XANAX [Suspect]
     Dosage: UNKNOWN
  5. NIASPAN [Concomitant]
  6. ACETYLSALICYLIC ACID SRT [Concomitant]

REACTIONS (6)
  - AGITATION [None]
  - BLOOD PRESSURE INCREASED [None]
  - DRUG EFFECT DECREASED [None]
  - FEELING ABNORMAL [None]
  - INSOMNIA [None]
  - NAUSEA [None]
